FAERS Safety Report 17845170 (Version 1)
Quarter: 2020Q2

REPORT INFORMATION
  Report Type: Spontaneous
  Country: CA (occurrence: CA)
  Receive Date: 20200601
  Receipt Date: 20200601
  Transmission Date: 20200714
  Serious: Yes (Hospitalization)
  Sender: FDA-Public Use
  Company Number: CA-ROCHE-2610576

PATIENT
  Age: 56 Year
  Sex: Female
  Weight: 93 kg

DRUGS (5)
  1. CELEXA [Concomitant]
     Active Substance: CITALOPRAM HYDROBROMIDE
     Route: 065
  2. RITUXIMAB. [Suspect]
     Active Substance: RITUXIMAB
     Indication: COLD TYPE HAEMOLYTIC ANAEMIA
     Route: 042
  3. ZYPREXA [Concomitant]
     Active Substance: OLANZAPINE
     Route: 065
  4. FLUDARABINE PHOSPHATE. [Suspect]
     Active Substance: FLUDARABINE PHOSPHATE
     Indication: PRODUCT USED FOR UNKNOWN INDICATION
     Route: 065
  5. CLONAZEPAM. [Concomitant]
     Active Substance: CLONAZEPAM
     Route: 065

REACTIONS (2)
  - Cold type haemolytic anaemia [Recovered/Resolved]
  - Full blood count decreased [Recovered/Resolved]
